FAERS Safety Report 24836530 (Version 1)
Quarter: 2025Q1

REPORT INFORMATION
  Report Type: Spontaneous
  Country: AU (occurrence: AU)
  Receive Date: 20250113
  Receipt Date: 20250113
  Transmission Date: 20250409
  Serious: Yes (Hospitalization)
  Sender: AFAXYS
  Company Number: AU-AFAXYS PHARMA, LLC-2024AFX00014

PATIENT
  Age: 39 Year
  Sex: Male

DRUGS (1)
  1. LIDOCAINE [Suspect]
     Active Substance: LIDOCAINE
     Indication: Nerve block

REACTIONS (7)
  - Local anaesthetic systemic toxicity [Recovered/Resolved]
  - Hallucination [Recovered/Resolved]
  - Blindness transient [Recovered/Resolved]
  - Agitation [Recovered/Resolved]
  - Paralysis [Recovered/Resolved]
  - Overdose [Recovered/Resolved]
  - Incorrect dose administered [Recovered/Resolved]
